FAERS Safety Report 16840976 (Version 1)
Quarter: 2019Q3

REPORT INFORMATION
  Report Type: Spontaneous
  Country: US (occurrence: US)
  Receive Date: 20190923
  Receipt Date: 20190923
  Transmission Date: 20191005
  Serious: No
  Sender: FDA-Public Use
  Company Number: US-BAYER-2019-165817

PATIENT
  Age: 71 Year
  Sex: Male

DRUGS (1)
  1. VITRAKVI [Suspect]
     Active Substance: LAROTRECTINIB
     Dosage: 100 MG, BID
     Route: 048
     Dates: start: 20190415

REACTIONS (2)
  - Medication error [None]
  - Musculoskeletal stiffness [None]

NARRATIVE: CASE EVENT DATE: 20190908
